FAERS Safety Report 7239307-1 (Version None)
Quarter: 2011Q1

REPORT INFORMATION
  Report Type: 
  Country: None (occurrence: None)
  Receive Date: 20110119
  Receipt Date: 20110119
  Transmission Date: 20110831
  Serious: Yes (Other)
  Sender: FDA-Public Use
  Company Number: None

PATIENT
  Age: 56 Year
  Sex: Female
  Weight: 68.0396 kg

DRUGS (1)
  1. SINGULAIR [Suspect]
     Indication: HYPERSENSITIVITY
     Dosage: 10MG DAILY PO
     Route: 048
     Dates: start: 20110108, end: 20110111

REACTIONS (5)
  - PSYCHOTIC DISORDER [None]
  - NIGHTMARE [None]
  - SUICIDAL IDEATION [None]
  - CONVERSION DISORDER [None]
  - ANXIETY [None]
